FAERS Safety Report 8896865 (Version 1)
Quarter: 2012Q4

REPORT INFORMATION
  Report Type: 
  Country: US (occurrence: US)
  Receive Date: 20121108
  Receipt Date: 20121108
  Transmission Date: 20130627
  Serious: No
  Sender: FDA-Public Use
  Company Number: US-AMGEN-USASP2012026653

PATIENT
  Age: 16 Year
  Sex: Female
  Weight: 61.22 kg

DRUGS (8)
  1. ENBREL [Suspect]
     Indication: JUVENILE ARTHRITIS
     Dosage: 50 mg, qwk
     Route: 058
  2. DEPO PROVERA [Concomitant]
     Dosage: 150 UNK, UNK
  3. HYDROCORTISONE [Concomitant]
     Dosage: UNK
  4. METAXALONE [Concomitant]
     Dosage: 800 mg, UNK
  5. VITAMIN D /00107901/ [Concomitant]
     Dosage: UNK
  6. TOLMETIN SODIUM [Concomitant]
     Dosage: 200 mg, UNK
  7. MULTI TABS [Concomitant]
     Dosage: UNK
  8. SULFASALAZINE [Concomitant]
     Dosage: 500 mg, UNK

REACTIONS (3)
  - Injection site pruritus [Unknown]
  - Injection site erythema [Unknown]
  - Injection site reaction [Unknown]
